FAERS Safety Report 14236306 (Version 7)
Quarter: 2018Q1

REPORT INFORMATION
  Report Type: Report from Study
  Country: CA (occurrence: CA)
  Receive Date: 20171129
  Receipt Date: 20180117
  Transmission Date: 20180508
  Serious: Yes (Life-Threatening, Hospitalization, Other)
  Sender: FDA-Public Use
  Company Number: PHHY2016CA008901

PATIENT
  Age: 72 Year
  Sex: Female

DRUGS (10)
  1. IRON [Concomitant]
     Active Substance: IRON
     Indication: PRODUCT USED FOR UNKNOWN INDICATION
     Dosage: 1 DF, QMO
     Route: 065
  2. COSENTYX [Suspect]
     Active Substance: SECUKINUMAB
     Dosage: 300 MG, QMO
     Route: 058
     Dates: start: 20171007
  3. HUMIRA [Concomitant]
     Active Substance: ADALIMUMAB
     Indication: PRODUCT USED FOR UNKNOWN INDICATION
     Route: 065
  4. REMICADE [Concomitant]
     Active Substance: INFLIXIMAB
     Indication: PRODUCT USED FOR UNKNOWN INDICATION
     Route: 065
  5. FUCIDIN [Suspect]
     Active Substance: FUSIDIC ACID
     Indication: BURNS THIRD DEGREE
     Dosage: UNK
     Route: 065
     Dates: start: 20171024
  6. COSENTYX [Suspect]
     Active Substance: SECUKINUMAB
     Dosage: 300 MG, QMO
     Route: 058
     Dates: start: 20160215
  7. COSENTYX [Suspect]
     Active Substance: SECUKINUMAB
     Indication: PSORIASIS
     Dosage: 300 MG, QW
     Route: 058
     Dates: start: 20160118, end: 20160208
  8. ENBREL [Concomitant]
     Active Substance: ETANERCEPT
     Indication: PRODUCT USED FOR UNKNOWN INDICATION
     Route: 065
  9. METHOTREXATE. [Suspect]
     Active Substance: METHOTREXATE
     Indication: PRODUCT USED FOR UNKNOWN INDICATION
     Dosage: UNK
     Route: 065
  10. ACITRETIN. [Concomitant]
     Active Substance: ACITRETIN
     Indication: PRODUCT USED FOR UNKNOWN INDICATION
     Route: 065

REACTIONS (36)
  - Gastrointestinal motility disorder [Unknown]
  - Headache [Unknown]
  - Fatigue [Unknown]
  - Skin exfoliation [Unknown]
  - Dysuria [Unknown]
  - Faeces discoloured [Unknown]
  - Mobility decreased [Unknown]
  - Burns third degree [Recovering/Resolving]
  - Nausea [Unknown]
  - Varicose vein [Unknown]
  - Dry skin [Unknown]
  - General physical health deterioration [Unknown]
  - Swelling [Unknown]
  - Flatulence [Unknown]
  - Pruritus [Not Recovered/Not Resolved]
  - Pain of skin [Unknown]
  - Scab [Unknown]
  - Coma [Unknown]
  - Gait disturbance [Unknown]
  - Dyspnoea [Unknown]
  - Osteoarthritis [Unknown]
  - Sexual dysfunction [Unknown]
  - Eczema [Unknown]
  - Drug effect incomplete [Unknown]
  - Fluid retention [Recovering/Resolving]
  - Haematochezia [Unknown]
  - Rectal fissure [Unknown]
  - Cardiac disorder [Unknown]
  - Haemoptysis [Unknown]
  - Psoriasis [Recovering/Resolving]
  - Erythema [Unknown]
  - Drug ineffective [Unknown]
  - Lung disorder [Unknown]
  - Peripheral swelling [Unknown]
  - Insomnia [Unknown]
  - Skin erosion [Unknown]

NARRATIVE: CASE EVENT DATE: 2016
